FAERS Safety Report 6342379-X (Version None)
Quarter: 2009Q3

REPORT INFORMATION
  Report Type: 
  Country: None (occurrence: None)
  Receive Date: 20090903
  Receipt Date: 20090903
  Transmission Date: 20100115
  Serious: No
  Sender: FDA-Public Use
  Company Number: None

PATIENT
  Sex: Female
  Weight: 36.4 kg

DRUGS (2)
  1. METHYLPREDNISOLONE ACETATE [Suspect]
     Dosage: 40 MG/ML IV
     Route: 042
     Dates: start: 20090807
  2. METHYLPREDNISOLONE SODIUM SUCCINATE [Suspect]

REACTIONS (3)
  - DRUG DISPENSING ERROR [None]
  - MEDICATION ERROR [None]
  - WRONG DRUG ADMINISTERED [None]
